FAERS Safety Report 24391771 (Version 1)
Quarter: 2024Q4

REPORT INFORMATION
  Report Type: Spontaneous
  Country: US (occurrence: None)
  Receive Date: 20241002
  Receipt Date: 20241002
  Transmission Date: 20250114
  Serious: No
  Sender: Public
  Company Number: None

PATIENT
  Age: 62 Year
  Sex: Male
  Weight: 103 kg

DRUGS (1)
  1. DOFETILIDE [Suspect]
     Active Substance: DOFETILIDE
     Dates: start: 20240205, end: 20240215

REACTIONS (2)
  - Electrocardiogram QT prolonged [None]
  - Therapy cessation [None]

NARRATIVE: CASE EVENT DATE: 20240229
